FAERS Safety Report 17244332 (Version 5)
Quarter: 2021Q2

REPORT INFORMATION
  Report Type: Spontaneous
  Country: US (occurrence: US)
  Receive Date: 20200107
  Receipt Date: 20210427
  Transmission Date: 20210716
  Serious: Yes (Other)
  Sender: FDA-Public Use
  Company Number: US-GILEAD-2019-0444850

PATIENT
  Sex: Male
  Weight: 86.17 kg

DRUGS (31)
  1. STRIBILD [Suspect]
     Active Substance: COBICISTAT\ELVITEGRAVIR\EMTRICITABINE\TENOFOVIR DISOPROXIL FUMARATE
     Indication: HIV INFECTION
     Dosage: UNK
     Route: 048
     Dates: start: 201302, end: 201604
  2. BIKTARVY [Concomitant]
     Active Substance: BICTEGRAVIR SODIUM\EMTRICITABINE\TENOFOVIR ALAFENAMIDE FUMARATE
  3. TRIZIVIR [Concomitant]
     Active Substance: ABACAVIR SULFATE\LAMIVUDINE\ZIDOVUDINE
  4. LEXIVA [Concomitant]
     Active Substance: FOSAMPRENAVIR CALCIUM
  5. FUZEON [Concomitant]
     Active Substance: ENFUVIRTIDE
  6. ISENTRESS [Concomitant]
     Active Substance: RALTEGRAVIR POTASSIUM
  7. STRIBILD [Suspect]
     Active Substance: COBICISTAT\ELVITEGRAVIR\EMTRICITABINE\TENOFOVIR DISOPROXIL FUMARATE
     Dosage: UNK
     Route: 048
     Dates: start: 2012, end: 201606
  8. VIREAD [Suspect]
     Active Substance: TENOFOVIR DISOPROXIL FUMARATE
     Dosage: UNK
     Route: 048
     Dates: start: 2002, end: 2005
  9. CRIXIVAN [Concomitant]
     Active Substance: INDINAVIR SULFATE
  10. NORVIR [Concomitant]
     Active Substance: RITONAVIR
  11. RETROVIR [Concomitant]
     Active Substance: ZIDOVUDINE
  12. ZIAGEN [Concomitant]
     Active Substance: ABACAVIR SULFATE
  13. CLARITIN?D NOS [Concomitant]
     Active Substance: LORATADINE\PSEUDOEPHEDRINE SULFATE
  14. GEMFIBROZIL. [Concomitant]
     Active Substance: GEMFIBROZIL
  15. TRUVADA [Suspect]
     Active Substance: EMTRICITABINE\TENOFOVIR DISOPROXIL FUMARATE
     Dosage: UNK
     Route: 048
     Dates: start: 2005, end: 2012
  16. VIREAD [Suspect]
     Active Substance: TENOFOVIR DISOPROXIL FUMARATE
     Dosage: UNK
     Route: 048
     Dates: start: 2004, end: 2016
  17. EPIVIR [Concomitant]
     Active Substance: LAMIVUDINE
  18. VIRACEPT [Concomitant]
     Active Substance: NELFINAVIR MESYLATE
  19. LOSARTAN. [Concomitant]
     Active Substance: LOSARTAN
  20. ROSUVASTATIN. [Concomitant]
     Active Substance: ROSUVASTATIN
  21. GENVOYA [Concomitant]
     Active Substance: COBICISTAT\ELVITEGRAVIR\EMTRICITABINE\TENOFOVIR ALAFENAMIDE FUMARATE
  22. CLOPIDOGREL [Concomitant]
     Active Substance: CLOPIDOGREL BISULFATE
  23. TRUVADA [Suspect]
     Active Substance: EMTRICITABINE\TENOFOVIR DISOPROXIL FUMARATE
     Indication: HIV INFECTION
     Dosage: UNK
     Route: 048
     Dates: start: 201002, end: 201204
  24. KALETRA [Concomitant]
     Active Substance: LOPINAVIR\RITONAVIR
  25. VIDEX [Concomitant]
     Active Substance: DIDANOSINE
  26. VIDEX EC [Concomitant]
     Active Substance: DIDANOSINE
  27. ZERIT [Concomitant]
     Active Substance: STAVUDINE
  28. ASPIRIN 81 [Concomitant]
     Active Substance: ASPIRIN
  29. VIREAD [Suspect]
     Active Substance: TENOFOVIR DISOPROXIL FUMARATE
     Indication: HIV INFECTION
     Dosage: UNK
     Route: 048
     Dates: start: 20030201, end: 200403
  30. SUSTIVA [Concomitant]
     Active Substance: EFAVIRENZ
  31. CARVEDILOL. [Concomitant]
     Active Substance: CARVEDILOL

REACTIONS (10)
  - Chronic kidney disease [Not Recovered/Not Resolved]
  - Emotional distress [Not Recovered/Not Resolved]
  - Pain [Not Recovered/Not Resolved]
  - Anhedonia [Not Recovered/Not Resolved]
  - Economic problem [Not Recovered/Not Resolved]
  - Skeletal injury [Unknown]
  - Renal failure [Unknown]
  - Drug resistance [Unknown]
  - Anxiety [Not Recovered/Not Resolved]
  - Depression [Not Recovered/Not Resolved]

NARRATIVE: CASE EVENT DATE: 2008
